FAERS Safety Report 4664507-4 (Version None)
Quarter: 2005Q2

REPORT INFORMATION
  Report Type: 
  Country: None (occurrence: None)
  Receive Date: 20050518
  Receipt Date: 20050118
  Transmission Date: 20051028
  Serious: Yes (Life-Threatening, Disabling)
  Sender: FDA-Public Use
  Company Number: JP-SP-2005-00300

PATIENT
  Age: 63 Year
  Sex: Male

DRUGS (6)
  1. IMMUCYST [Suspect]
     Indication: TRANSITIONAL CELL CANCER OF THE RENAL PELVIS AND URETER
     Route: 043
     Dates: start: 20041220, end: 20050117
  2. AMLODIPINE BESYLATE [Concomitant]
     Dosage: 1 TAB/DAY
     Route: 048
  3. ENALAPRIL MALEATE [Concomitant]
     Dosage: 2 TAB/DAY
     Route: 048
  4. ALLOPURINOL [Concomitant]
     Dosage: 1 TAB/DAY
     Route: 048
  5. PRAVASTATIN SODIUM [Concomitant]
     Dosage: 1 TAB/DAY
     Route: 048
  6. SPIRONOLACTONE [Concomitant]
     Dosage: 1 TAB/DAY
     Route: 048

REACTIONS (5)
  - BLOOD CREATINE INCREASED [None]
  - HYPERKALAEMIA [None]
  - PYREXIA [None]
  - RENAL FAILURE ACUTE [None]
  - SEPTIC SHOCK [None]
